APPROVED DRUG PRODUCT: TESTOSTERONE
Active Ingredient: TESTOSTERONE
Strength: 30MG/1.5ML ACTUATION
Dosage Form/Route: SOLUTION, METERED;TRANSDERMAL
Application: A212301 | Product #001
Applicant: ENCUBE ETHICALS PRIVATE LTD
Approved: Jan 11, 2021 | RLD: No | RS: No | Type: DISCN